APPROVED DRUG PRODUCT: BREXPIPRAZOLE
Active Ingredient: BREXPIPRAZOLE
Strength: 4MG
Dosage Form/Route: TABLET;ORAL
Application: A213758 | Product #006
Applicant: CHARTWELL RX SCIENCES LLC
Approved: Oct 25, 2023 | RLD: No | RS: No | Type: DISCN